FAERS Safety Report 19174934 (Version 3)
Quarter: 2021Q2

REPORT INFORMATION
  Report Type: Report from Study
  Country: KR (occurrence: KR)
  Receive Date: 20210424
  Receipt Date: 20210528
  Transmission Date: 20210717
  Serious: Yes (Hospitalization)
  Sender: FDA-Public Use
  Company Number: KR-CELLTRION INC.-2021KR005199

PATIENT

DRUGS (77)
  1. HERZUMA [Suspect]
     Active Substance: TRASTUZUMAB-PKRB
     Dosage: (C3D1) 78 MG
     Dates: start: 20210223
  2. HERZUMA [Suspect]
     Active Substance: TRASTUZUMAB-PKRB
     Dosage: (C3D22) 78 MG
     Dates: start: 20210316
  3. HERZUMA [Suspect]
     Active Substance: TRASTUZUMAB-PKRB
     Dosage: (C4D8)  78 MG
     Dates: start: 20210330
  4. CYRAMZA [Suspect]
     Active Substance: RAMUCIRUMAB
     Dosage: 312 MG (C4D1)
     Dates: start: 20210323
  5. HERCEPTIN [Suspect]
     Active Substance: TRASTUZUMAB
     Indication: PRODUCT USED FOR UNKNOWN INDICATION
     Dosage: 156 MG (12/29)
  6. HERCEPTIN [Suspect]
     Active Substance: TRASTUZUMAB
     Dosage: 78 MG (2/2)
  7. HERCEPTIN [Suspect]
     Active Substance: TRASTUZUMAB
     Dosage: 78 MG (2/9)
  8. GENEXOL [PACLITAXEL] [Suspect]
     Active Substance: PACLITAXEL
     Dosage: 91 MG (C4D8)
     Dates: start: 20210330
  9. GENEXOL [PACLITAXEL] [Suspect]
     Active Substance: PACLITAXEL
     Dosage: 91 MG (C4D15)
     Dates: start: 20210406
  10. ENCOVER [Concomitant]
     Indication: PROPHYLAXIS
  11. MECOOL [Concomitant]
     Indication: PREMEDICATION
     Dosage: 10 MG, PRN
     Route: 042
     Dates: start: 20201229
  12. M?COBAL [Concomitant]
     Indication: PROPHYLAXIS
  13. MUCOSTA [Concomitant]
     Active Substance: REBAMIPIDE
     Indication: GASTRITIS PROPHYLAXIS
     Dosage: 600 MG, TID
     Route: 048
     Dates: start: 20201027
  14. NESP PREFILLED SYRINGE [Concomitant]
     Indication: ANAEMIA
     Dosage: 120 MICROGRAM, PRN
     Route: 058
     Dates: start: 20210202
  15. HERZUMA [Suspect]
     Active Substance: TRASTUZUMAB-PKRB
     Dosage: (C2D1) 78 MG
     Dates: start: 20210126
  16. HERZUMA [Suspect]
     Active Substance: TRASTUZUMAB-PKRB
     Dosage: (C3D8) 78 MG
     Dates: start: 20210302
  17. CYRAMZA [Suspect]
     Active Substance: RAMUCIRUMAB
     Dosage: 312 MG (C2D1)
     Dates: start: 20210126
  18. HERCEPTIN [Suspect]
     Active Substance: TRASTUZUMAB
     Dosage: 78 MG (3/23)
  19. ALMAGEL [Concomitant]
     Indication: GASTRITIS PROPHYLAXIS
     Dosage: 1500 MG, TID
     Route: 048
     Dates: start: 20201208
  20. LASIX [Concomitant]
     Active Substance: FUROSEMIDE
     Indication: PROPHYLAXIS
  21. HERZUMA [Suspect]
     Active Substance: TRASTUZUMAB-PKRB
     Dosage: (C1D8) 78 MG
     Dates: start: 20210105
  22. HERZUMA [Suspect]
     Active Substance: TRASTUZUMAB-PKRB
     Dosage: (C4D15) 78 MG
     Dates: start: 20210406
  23. HERCEPTIN [Suspect]
     Active Substance: TRASTUZUMAB
     Dosage: 78 MG (3/2)
  24. HERCEPTIN [Suspect]
     Active Substance: TRASTUZUMAB
     Dosage: 78 MG (3/16)
  25. HERZUMA [Suspect]
     Active Substance: TRASTUZUMAB-PKRB
     Indication: CHEMOTHERAPY
     Dosage: 2MG/KG : 78MG (HEIGHT: 156 CM, WEIGHT: 39 KG, BSA: 1.3)
  26. HERZUMA [Suspect]
     Active Substance: TRASTUZUMAB-PKRB
     Dosage: (C1D1) 156 MG
     Dates: start: 20201229
  27. HERZUMA [Suspect]
     Active Substance: TRASTUZUMAB-PKRB
     Dosage: (C2D8) 78 MG
     Dates: start: 20210202
  28. HERZUMA [Suspect]
     Active Substance: TRASTUZUMAB-PKRB
     Dosage: (C2D22) 78 MG
     Dates: start: 20210216
  29. CYRAMZA [Suspect]
     Active Substance: RAMUCIRUMAB
     Indication: PRODUCT USED FOR UNKNOWN INDICATION
     Dosage: 312 MG (C1D1)
     Dates: start: 20201229
  30. CYRAMZA [Suspect]
     Active Substance: RAMUCIRUMAB
     Dosage: 312 MG (C3D15)
     Dates: start: 20210309
  31. HERCEPTIN [Suspect]
     Active Substance: TRASTUZUMAB
     Dosage: 78 MG (1/5)
  32. GENEXOL [PACLITAXEL] [Suspect]
     Active Substance: PACLITAXEL
     Dosage: 91 MG (C2D8)
     Dates: start: 20210202
  33. GENEXOL [PACLITAXEL] [Suspect]
     Active Substance: PACLITAXEL
     Dosage: 91 MG (C2D15)
     Dates: start: 20210209
  34. ATIVAN [Concomitant]
     Active Substance: LORAZEPAM
     Indication: PROPHYLAXIS OF NAUSEA AND VOMITING
     Dosage: 0.5 MG, PRN
     Route: 048
     Dates: start: 20201208
  35. MATRIFEN [Concomitant]
     Active Substance: FENTANYL
     Dosage: 25 UG/H, PRN
     Route: 062
     Dates: start: 20210504
  36. CEFTRIAXONE. [Concomitant]
     Active Substance: CEFTRIAXONE
     Indication: ANTIBIOTIC PROPHYLAXIS
     Dosage: 2 G, DAILY
     Route: 042
     Dates: start: 20210415, end: 20210419
  37. LASIX [Concomitant]
     Active Substance: FUROSEMIDE
     Indication: WEIGHT INCREASED
     Dosage: 20 MG
     Route: 042
     Dates: start: 20201210, end: 20201212
  38. HERZUMA [Suspect]
     Active Substance: TRASTUZUMAB-PKRB
     Dosage: (C1D22) 78 MG
     Dates: start: 20210119
  39. HERZUMA [Suspect]
     Active Substance: TRASTUZUMAB-PKRB
     Dosage: (4 CYCLE DAY 22, CHEMOTHERAPY RESTART)/ (C4D22) 78MG
     Dates: start: 20210420
  40. HERCEPTIN [Suspect]
     Active Substance: TRASTUZUMAB
     Dosage: 78 (1/12)
  41. HERCEPTIN [Suspect]
     Active Substance: TRASTUZUMAB
     Dosage: 78 MG (1/26)
  42. HERCEPTIN [Suspect]
     Active Substance: TRASTUZUMAB
     Dosage: 78 MG (3/30)
  43. HERCEPTIN [Suspect]
     Active Substance: TRASTUZUMAB
     Dosage: 78 MG (4)
  44. GENEXOL [PACLITAXEL] [Suspect]
     Active Substance: PACLITAXEL
     Indication: PRODUCT USED FOR UNKNOWN INDICATION
     Dosage: 104 MG (C1D1)
     Dates: start: 20201229
  45. GENEXOL [PACLITAXEL] [Suspect]
     Active Substance: PACLITAXEL
     Dosage: 91 MG (C3D15)
     Dates: start: 20210309
  46. ENCOVER [Concomitant]
     Indication: DECREASED APPETITE
     Dosage: 200 ML, PRN
     Route: 048
     Dates: start: 20201213
  47. PENIRAMIN [Concomitant]
     Indication: PREMEDICATION
     Dosage: 4 MG, PRN
     Route: 042
     Dates: start: 20201209
  48. MATRIFEN [Concomitant]
     Active Substance: FENTANYL
     Indication: PAIN PROPHYLAXIS
     Dosage: 12 UG/H, PRN
     Route: 062
     Dates: start: 20210223
  49. CYRAMZA [Suspect]
     Active Substance: RAMUCIRUMAB
     Dosage: 312 MG (C2D15)
     Dates: start: 20210209
  50. HERCEPTIN [Suspect]
     Active Substance: TRASTUZUMAB
     Dosage: 78 MG (1/19)
  51. HERCEPTIN [Suspect]
     Active Substance: TRASTUZUMAB
     Dosage: 78 MG (2/16)
  52. HERCEPTIN [Suspect]
     Active Substance: TRASTUZUMAB
     Dosage: 78 MG (2/23)
  53. HERCEPTIN [Suspect]
     Active Substance: TRASTUZUMAB
     Dosage: 78 MG (3/9)
  54. HERCEPTIN [Suspect]
     Active Substance: TRASTUZUMAB
     Dosage: 78 MG (4/20)
  55. GENEXOL [PACLITAXEL] [Suspect]
     Active Substance: PACLITAXEL
     Dosage: 91 MG (C1D8)
     Dates: start: 20210105
  56. MEGACE F [Concomitant]
     Indication: DECREASED APPETITE
     Dosage: 5 ML, PRN
     Route: 048
     Dates: start: 20201211
  57. MEGACE F [Concomitant]
     Indication: PROPHYLAXIS
  58. OMAPONE PERI [Concomitant]
     Indication: NUTRITIONAL SUPPLEMENTATION
     Dosage: 500 ML
     Route: 042
     Dates: start: 20201208
  59. OMAPONE PERI [Concomitant]
     Indication: PROPHYLAXIS
  60. HERZUMA [Suspect]
     Active Substance: TRASTUZUMAB-PKRB
     Dosage: (C1D15) 78 MG
     Dates: start: 20210112
  61. HERZUMA [Suspect]
     Active Substance: TRASTUZUMAB-PKRB
     Dosage: (C2D15) 78 MG
     Dates: start: 20210209
  62. CYRAMZA [Suspect]
     Active Substance: RAMUCIRUMAB
     Dosage: 312 MG (C4D15)
     Dates: start: 20210406
  63. GENEXOL [PACLITAXEL] [Suspect]
     Active Substance: PACLITAXEL
     Dosage: 91 MG (C1D15)
     Dates: start: 20210112
  64. GENEXOL [PACLITAXEL] [Suspect]
     Active Substance: PACLITAXEL
     Dosage: 91 MG (C3D1)
     Dates: start: 20210223
  65. GENEXOL [PACLITAXEL] [Suspect]
     Active Substance: PACLITAXEL
     Dosage: 91 MG (C3D8)
     Dates: start: 20210302
  66. DICAMAX?D [Concomitant]
     Active Substance: CALCIUM CARBONATE\CHOLECALCIFEROL
     Indication: OSTEOPOROSIS PROPHYLAXIS
     Dosage: 1 DOSAGE FORM, QD
     Route: 048
     Dates: start: 20200730
  67. DEXAMETHASONE. [Concomitant]
     Active Substance: DEXAMETHASONE
     Indication: PREMEDICATION
     Dosage: 5 MG, PRN
     Route: 042
     Dates: start: 20201209
  68. FEROBA YOU [Concomitant]
     Indication: ANAEMIA PROPHYLAXIS
     Dosage: 512 MG, BID
     Route: 048
     Dates: start: 20201208
  69. MAGMIL [Concomitant]
     Active Substance: MAGNESIUM HYDROXIDE
     Indication: CONSTIPATION PROPHYLAXIS
     Dosage: 500 MG, PRN
     Route: 048
     Dates: start: 20201208
  70. ZYPREXA [Concomitant]
     Active Substance: OLANZAPINE
     Indication: PROPHYLAXIS OF NAUSEA AND VOMITING
     Dosage: 2.5 MG, DAILY
     Route: 048
     Dates: start: 20201208
  71. HERZUMA [Suspect]
     Active Substance: TRASTUZUMAB-PKRB
     Dosage: (C3D15) 78 MG
     Dates: start: 20210309
  72. HERZUMA [Suspect]
     Active Substance: TRASTUZUMAB-PKRB
     Dosage: (C4D1) 78 MG
     Dates: start: 20210323
  73. CYRAMZA [Suspect]
     Active Substance: RAMUCIRUMAB
     Dosage: 312 MG (C1D15)
     Dates: start: 20210112
  74. CYRAMZA [Suspect]
     Active Substance: RAMUCIRUMAB
     Dosage: 312 MG (C3D1)
     Dates: start: 20210223
  75. GENEXOL [PACLITAXEL] [Suspect]
     Active Substance: PACLITAXEL
     Dosage: 91 MG (C2D1)
     Dates: start: 20210126
  76. GENEXOL [PACLITAXEL] [Suspect]
     Active Substance: PACLITAXEL
     Dosage: 91 MG (C4D1)
     Dates: start: 20210323
  77. M?COBAL [Concomitant]
     Indication: VITAMIN SUPPLEMENTATION
     Dosage: 1500 MICROGRAM, TID
     Route: 048
     Dates: start: 20201208

REACTIONS (1)
  - Gastric ulcer [Recovered/Resolved]

NARRATIVE: CASE EVENT DATE: 20210412
